FAERS Safety Report 8228523-8 (Version None)
Quarter: 2012Q1

REPORT INFORMATION
  Report Type: 
  Country: None (occurrence: None)
  Receive Date: 20120322
  Receipt Date: 20110503
  Transmission Date: 20120608
  Serious: Yes (Other)
  Sender: FDA-Public Use
  Company Number: US-BRISTOL-MYERS SQUIBB COMPANY-15718026

PATIENT
  Sex: Male

DRUGS (3)
  1. BENADRYL [Concomitant]
     Indication: PREMEDICATION
  2. SOLU-CORTEF [Concomitant]
     Indication: PREMEDICATION
  3. ERBITUX [Suspect]
     Indication: HEAD AND NECK CANCER
     Dosage: FIRST INF;INTERRUPTED AND RESTARTED

REACTIONS (1)
  - HYPERSENSITIVITY [None]
